FAERS Safety Report 7572363-X (Version None)
Quarter: 2011Q2

REPORT INFORMATION
  Report Type: 
  Country: None (occurrence: None)
  Receive Date: 20110624
  Receipt Date: 20110615
  Transmission Date: 20111010
  Serious: Yes (Hospitalization)
  Sender: FDA-Public Use
  Company Number: US-ASTRAZENECA-2011SE36573

PATIENT
  Sex: Female
  Weight: 74.8 kg

DRUGS (3)
  1. ALBUTEROL SULFATE AUTOHALER [Concomitant]
  2. PULMICORT FLEXHALER [Suspect]
     Indication: ASTHMA
     Route: 055
  3. ANOTHER UNKNOWN INHALER [Concomitant]
     Route: 055

REACTIONS (1)
  - BRONCHITIS [None]
